FAERS Safety Report 5887760-8 (Version None)
Quarter: 2008Q3

REPORT INFORMATION
  Report Type: 
  Country: None (occurrence: None)
  Receive Date: 20080916
  Receipt Date: 20080911
  Transmission Date: 20090109
  Serious: Yes (Hospitalization)
  Sender: FDA-Public Use
  Company Number: 2008AL010131

PATIENT
  Age: 92 Year
  Sex: Male
  Weight: 72.5755 kg

DRUGS (9)
  1. DIGOXIN [Suspect]
     Indication: CARDIOMYOPATHY
     Dosage: 0.25MG, DAILY, PO
     Route: 048
     Dates: start: 20030101
  2. PLAVIX [Concomitant]
  3. NEXIUM [Concomitant]
  4. NIASPAN [Concomitant]
  5. LEVOTHYROXINE SODIUM [Concomitant]
  6. METOPROLOL [Concomitant]
  7. FUROSEMIDE [Concomitant]
  8. ASPIRIN [Concomitant]
  9. CRESTOR [Concomitant]

REACTIONS (7)
  - ASTHENIA [None]
  - CATHETERISATION CARDIAC ABNORMAL [None]
  - DIZZINESS [None]
  - EJECTION FRACTION DECREASED [None]
  - FATIGUE [None]
  - HYPOTENSION [None]
  - MALAISE [None]
